FAERS Safety Report 4395551-2 (Version None)
Quarter: 2004Q3

REPORT INFORMATION
  Report Type: 
  Country: None (occurrence: None)
  Receive Date: 20040713
  Receipt Date: 20040707
  Transmission Date: 20050211
  Serious: Yes (Hospitalization)
  Sender: FDA-Public Use
  Company Number: 200411620DE

PATIENT
  Age: 57 Year
  Sex: Female
  Weight: 60 kg

DRUGS (7)
  1. RIFA [Suspect]
     Indication: PULMONARY TUBERCULOSIS
     Route: 048
     Dates: start: 20031215, end: 20040209
  2. ALLOPURINOL-RATIOPHARM [Suspect]
     Indication: HYPERURICAEMIA
     Route: 048
     Dates: end: 20040205
  3. ISOZID [Suspect]
     Indication: PULMONARY TUBERCULOSIS
     Route: 048
     Dates: start: 20031215, end: 20040205
  4. PANTOZOL [Suspect]
     Indication: PROPHYLAXIS
     Route: 048
     Dates: end: 20040205
  5. PYRAFAT [Suspect]
     Indication: PULMONARY TUBERCULOSIS
     Route: 048
     Dates: start: 20031215, end: 20040208
  6. EMB [Concomitant]
     Indication: PULMONARY TUBERCULOSIS
     Route: 048
     Dates: start: 20031215
  7. L-THYROXIN ^HENNING BERLIN^ [Concomitant]
     Indication: GOITRE
     Route: 048
     Dates: start: 20000101

REACTIONS (5)
  - BLOOD BILIRUBIN INCREASED [None]
  - DRUG INTERACTION [None]
  - HEPATITIS ACUTE [None]
  - JAUNDICE [None]
  - TRANSAMINASES INCREASED [None]
